FAERS Safety Report 21667624 (Version 1)
Quarter: 2022Q4

REPORT INFORMATION
  Report Type: Spontaneous
  Country: JP (occurrence: JP)
  Receive Date: 20221201
  Receipt Date: 20221201
  Transmission Date: 20230113
  Serious: Yes (Death, Other)
  Sender: FDA-Public Use
  Company Number: JP-SA-2022SA488885

PATIENT
  Age: 79 Year
  Sex: Male

DRUGS (4)
  1. OXALIPLATIN [Suspect]
     Active Substance: OXALIPLATIN
     Indication: Colon cancer
     Route: 042
  2. LEVOLEUCOVORIN CALCIUM [Suspect]
     Active Substance: LEVOLEUCOVORIN CALCIUM
     Indication: Colon cancer
     Route: 042
  3. FLUOROURACIL [Suspect]
     Active Substance: FLUOROURACIL
     Indication: Colon cancer
     Route: 042
  4. ETHAMBUTOL\ISONIAZID\RIFAMPIN [Suspect]
     Active Substance: ETHAMBUTOL\ISONIAZID\RIFAMPIN
     Indication: Pulmonary tuberculosis

REACTIONS (5)
  - Pulmonary tuberculosis [Fatal]
  - Liver disorder [Unknown]
  - Eastern Cooperative Oncology Group performance status worsened [Unknown]
  - Nausea [Unknown]
  - Pain [Unknown]
